FAERS Safety Report 8560152-9 (Version None)
Quarter: 2012Q3

REPORT INFORMATION
  Report Type: 
  Country: None (occurrence: None)
  Receive Date: 20120723
  Receipt Date: 20120712
  Transmission Date: 20120928
  Serious: Yes (Hospitalization)
  Sender: FDA-Public Use
  Company Number: 2012MA008726

PATIENT
  Age: 74 Year
  Sex: Female

DRUGS (5)
  1. CHLORPHENIRAMINE MALEATE [Concomitant]
  2. RANITIDINE [Concomitant]
  3. ONDANSETRON [Concomitant]
  4. PACLITAXEL [Suspect]
     Indication: PERITONEAL NEOPLASM
     Dosage: 280 MG;QD;IV
     Route: 042
     Dates: start: 20120620
  5. DEXAMETHASONE [Concomitant]

REACTIONS (9)
  - PAIN [None]
  - BLOOD PRESSURE INCREASED [None]
  - VISUAL ACUITY REDUCED [None]
  - ABDOMINAL PAIN UPPER [None]
  - HYPERHIDROSIS [None]
  - FLUSHING [None]
  - INFUSION RELATED REACTION [None]
  - TACHYCARDIA [None]
  - HYPOTENSION [None]
